FAERS Safety Report 16473643 (Version 1)
Quarter: 2019Q2

REPORT INFORMATION
  Report Type: Spontaneous
  Country: US (occurrence: US)
  Receive Date: 20190515
  Receipt Date: 20190515
  Transmission Date: 20190711
  Serious: No
  Sender: FDA-Public Use
  Company Number: None

PATIENT
  Age: 47 Year
  Sex: Female

DRUGS (3)
  1. CYCLOSPORINE MODIFIED [Suspect]
     Active Substance: CYCLOSPORINE
     Dates: start: 201902, end: 201905
  2. PREVACID [Concomitant]
     Active Substance: LANSOPRAZOLE
  3. IBUPROFEN. [Concomitant]
     Active Substance: IBUPROFEN

REACTIONS (2)
  - Renal impairment [None]
  - Laboratory test abnormal [None]

NARRATIVE: CASE EVENT DATE: 20190401
